FAERS Safety Report 5296178-0 (Version None)
Quarter: 2007Q2

REPORT INFORMATION
  Report Type: 
  Country: None (occurrence: None)
  Receive Date: 20070413
  Receipt Date: 20070409
  Transmission Date: 20071010
  Serious: Yes (Hospitalization)
  Sender: FDA-Public Use
  Company Number: US-GLAXOSMITHKLINE-A0646273A

PATIENT
  Sex: Female

DRUGS (4)
  1. FLOVENT [Suspect]
     Indication: ASTHMA
     Dosage: 2PUFF TWICE PER DAY
     Route: 055
  2. NEBULIZER [Concomitant]
  3. XOPENEX [Concomitant]
  4. ATROVENT [Concomitant]

REACTIONS (4)
  - ASTHMA [None]
  - CARDIAC DISORDER [None]
  - WEIGHT DECREASED [None]
  - WEIGHT INCREASED [None]
